FAERS Safety Report 4866199-8 (Version None)
Quarter: 2005Q4

REPORT INFORMATION
  Report Type: 
  Country: None (occurrence: None)
  Receive Date: 20051221
  Receipt Date: 20051212
  Transmission Date: 20060501
  Serious: Yes (Death)
  Sender: FDA-Public Use
  Company Number: 220272

PATIENT
  Sex: Male
  Weight: 77.1 kg

DRUGS (1)
  1. EFALIZUMAB (EFALIZUMAB) [Suspect]
     Indication: PSORIASIS
     Dosage: 1 MG/KG, SUBCUTANEOUS
     Route: 058
     Dates: start: 20031208

REACTIONS (1)
  - DEATH [None]
